FAERS Safety Report 12551974 (Version 1)
Quarter: 2016Q3

REPORT INFORMATION
  Report Type: Spontaneous
  Country: US (occurrence: None)
  Receive Date: 20160712
  Receipt Date: 20160712
  Transmission Date: 20161109
  Serious: No
  Sender: FDA-Public Use
  Company Number: None

PATIENT
  Age: 61 Year
  Sex: Male
  Weight: 92.99 kg

DRUGS (6)
  1. ASPIRIN. [Concomitant]
     Active Substance: ASPIRIN
  2. VITAMIN D3 [Concomitant]
     Active Substance: CHOLECALCIFEROL
  3. VYVANSE [Concomitant]
     Active Substance: LISDEXAMFETAMINE DIMESYLATE
  4. ACYCLOVIR. [Concomitant]
     Active Substance: ACYCLOVIR
  5. TEMAZEPAM 15MG CAPSULE QUALITEST PHARMACEUTICALS [Suspect]
     Active Substance: TEMAZEPAM
     Indication: INSOMNIA
     Dosage: 15 MG 1 CAPSULE AT BEDTIME BY MOUTH
     Route: 048
     Dates: start: 20160603, end: 20160624
  6. OMEPRAZOLE. [Concomitant]
     Active Substance: OMEPRAZOLE

REACTIONS (2)
  - Visual impairment [None]
  - Product substitution issue [None]

NARRATIVE: CASE EVENT DATE: 20160622
